FAERS Safety Report 5494157-1 (Version None)
Quarter: 2007Q4

REPORT INFORMATION
  Report Type: 
  Country: None (occurrence: None)
  Receive Date: 20071024
  Receipt Date: 20071017
  Transmission Date: 20080405
  Serious: Yes (Hospitalization)
  Sender: FDA-Public Use
  Company Number: PHNR2007AU02010

PATIENT
  Sex: Male

DRUGS (1)
  1. TRANSDERM-NITRO [Suspect]
     Route: 062

REACTIONS (3)
  - APNOEA [None]
  - DEVICE MALFUNCTION [None]
  - PHARMACEUTICAL PRODUCT COMPLAINT [None]
